FAERS Safety Report 7578749-1 (Version None)
Quarter: 2011Q2

REPORT INFORMATION
  Report Type: 
  Country: None (occurrence: None)
  Receive Date: 20110628
  Receipt Date: 20110623
  Transmission Date: 20111010
  Serious: No
  Sender: FDA-Public Use
  Company Number: US-PFIZER INC-2011124344

PATIENT
  Sex: Female
  Weight: 57.5 kg

DRUGS (4)
  1. CARDIZEM [Concomitant]
     Dosage: UNK
  2. ADVIL PM [Suspect]
     Indication: INSOMNIA
     Dosage: 76/400 MG, DAILY AT BEDTIME
     Dates: start: 20110301
  3. MAXZIDE [Concomitant]
     Dosage: UNK
  4. CRESTOR [Concomitant]
     Dosage: UNK

REACTIONS (1)
  - DRUG EFFECT DECREASED [None]
